FAERS Safety Report 4787500-X (Version None)
Quarter: 2005Q4

REPORT INFORMATION
  Report Type: 
  Country: None (occurrence: None)
  Receive Date: 20051003
  Receipt Date: 20050922
  Transmission Date: 20060501
  Serious: Yes (Death, Other)
  Sender: FDA-Public Use
  Company Number: 200512531GDS

PATIENT
  Sex: 0

DRUGS (2)
  1. TRASYLOL [Suspect]
     Indication: POST PROCEDURAL HAEMORRHAGE
     Dosage: 2000000 KIU, ONCE, INTRAVENOUS; 2000000 KIU, ONCE, INTRAVENOUS; 500000 KIU, ONCE, INTRAVENOUS
     Route: 042
  2. CLOPIDOGREL [Concomitant]

REACTIONS (2)
  - CEREBROVASCULAR ACCIDENT [None]
  - POST PROCEDURAL COMPLICATION [None]
